FAERS Safety Report 6665173-9 (Version None)
Quarter: 2010Q2

REPORT INFORMATION
  Report Type: 
  Country: None (occurrence: None)
  Receive Date: 20100402
  Receipt Date: 20100330
  Transmission Date: 20101027
  Serious: Yes (Hospitalization, Other)
  Sender: FDA-Public Use
  Company Number: RU-BRISTOL-MYERS SQUIBB COMPANY-15026396

PATIENT
  Age: 62 Year
  Sex: Female
  Weight: 69 kg

DRUGS (2)
  1. CISPLATIN [Suspect]
     Indication: GASTROOESOPHAGEAL CANCER
     Dosage: ON DAY 1 OF CYCLE,RECENT INFUSION ON 3MAR10.
     Route: 042
     Dates: start: 20100203
  2. CAPECITABINE [Suspect]
     Indication: GASTROOESOPHAGEAL CANCER
     Dosage: ON DAY 1-15 RECENT INFUSION ON 9MAR10 DOSAGE FORM=TABS
     Route: 048
     Dates: start: 20100203

REACTIONS (1)
  - PULMONARY EMBOLISM [None]
